FAERS Safety Report 9087415 (Version 1)
Quarter: 2013Q1

REPORT INFORMATION
  Report Type: Report from Study
  Country: US (occurrence: US)
  Receive Date: 20130130
  Receipt Date: 20130130
  Transmission Date: 20140127
  Serious: No
  Sender: FDA-Public Use
  Company Number: US-ABBOTT-12P-163-0980980-00

PATIENT
  Age: 14 Year
  Sex: Female

DRUGS (6)
  1. HUMIRA [Suspect]
     Indication: JUVENILE IDIOPATHIC ARTHRITIS
     Dates: start: 201205
  2. PIROXICAM [Concomitant]
     Indication: JUVENILE IDIOPATHIC ARTHRITIS
  3. RANITIDINE [Concomitant]
     Indication: JUVENILE IDIOPATHIC ARTHRITIS
  4. AMITRIPTYLINE HCL [Concomitant]
     Indication: JUVENILE IDIOPATHIC ARTHRITIS
     Dosage: AT BEDIME
  5. SINGULAIR [Concomitant]
     Indication: JUVENILE IDIOPATHIC ARTHRITIS
     Dosage: DAILY
  6. SINGULAIR [Concomitant]
     Indication: HYPERSENSITIVITY

REACTIONS (2)
  - Menorrhagia [Not Recovered/Not Resolved]
  - Menorrhagia [Not Recovered/Not Resolved]
